FAERS Safety Report 15239964 (Version 1)
Quarter: 2018Q3

REPORT INFORMATION
  Report Type: Spontaneous
  Country: GB (occurrence: GB)
  Receive Date: 20180803
  Receipt Date: 20180803
  Transmission Date: 20181010
  Serious: Yes (Life-Threatening, Disabling)
  Sender: FDA-Public Use
  Company Number: GB-TEVA-2018-GB-934420

PATIENT
  Age: 60 Year
  Sex: Female

DRUGS (3)
  1. OMEPRAZOLE SODIUM [Concomitant]
     Active Substance: OMEPRAZOLE SODIUM
     Route: 065
  2. PROPRANOLOL [Suspect]
     Active Substance: PROPRANOLOL HYDROCHLORIDE
     Indication: PROPHYLAXIS
     Dosage: 40MG TO 80MG
     Route: 048
     Dates: start: 19990901, end: 20180301
  3. ALENDRONIC ACID [Concomitant]
     Active Substance: ALENDRONIC ACID
     Route: 065

REACTIONS (2)
  - Somnambulism [Unknown]
  - Sleep terror [Recovered/Resolved]

NARRATIVE: CASE EVENT DATE: 19990901
